FAERS Safety Report 10654384 (Version 1)
Quarter: 2014Q4

REPORT INFORMATION
  Report Type: Spontaneous
  Country: US (occurrence: None)
  Receive Date: 20141215
  Receipt Date: 20141215
  Transmission Date: 20150529
  Serious: Yes (Hospitalization)
  Sender: FDA-Public Use
  Company Number: None

PATIENT
  Age: 13 Year
  Sex: Male
  Weight: 52 kg

DRUGS (4)
  1. METHOTREXATE [Suspect]
     Active Substance: METHOTREXATE
     Dates: end: 00011206
  2. PROCARBAZINE [Suspect]
     Active Substance: PROCARBAZINE
     Dates: end: 00011206
  3. VINCRISTINE SULFATE. [Suspect]
     Active Substance: VINCRISTINE SULFATE
     Dates: end: 00011206
  4. RITUXIMAB (MOAB C2B8 ANTI CD20, CHIMERIC) [Suspect]
     Active Substance: RITUXIMAB
     Dates: end: 00011204

REACTIONS (10)
  - Anaemia [None]
  - Upper gastrointestinal haemorrhage [None]
  - Aspartate aminotransferase increased [None]
  - Decreased appetite [None]
  - Alanine aminotransferase increased [None]
  - Hypophagia [None]
  - Hypotension [None]
  - Blood bilirubin increased [None]
  - Duodenal ulcer haemorrhage [None]
  - Weight decreased [None]

NARRATIVE: CASE EVENT DATE: 20141208
